FAERS Safety Report 8584713-6 (Version None)
Quarter: 2012Q3

REPORT INFORMATION
  Report Type: 
  Country: None (occurrence: None)
  Receive Date: 20120810
  Receipt Date: 20120731
  Transmission Date: 20120928
  Serious: Yes (Hospitalization)
  Sender: FDA-Public Use
  Company Number: US-BAYER-2012-078819

PATIENT
  Age: 36 Year
  Sex: Female
  Weight: 126.8 kg

DRUGS (14)
  1. DEXAMETHASONE [Concomitant]
     Indication: PAIN
     Dosage: 4 CC
     Dates: start: 20100223
  2. FLECTOR [Concomitant]
     Dosage: 1.3% PATCH
  3. YAZ [Suspect]
     Indication: PREMENSTRUAL SYNDROME
  4. CLARITIN [Concomitant]
     Dosage: 10 MG, QD  AS NEEDED
     Dates: start: 20100211
  5. CELEBREX [Concomitant]
     Dosage: 200 MG, UNK
  6. SIMPLY SALINE [Concomitant]
     Dosage: 0.9% AEROSOL APPLY TID
     Route: 045
     Dates: start: 20100211
  7. DEXAMETHASONE [Concomitant]
     Indication: INFLAMMATION
  8. MARCAINE [Concomitant]
     Indication: PAIN
     Dosage: 1 CC
     Dates: start: 20100223
  9. FLONASE [Concomitant]
     Dosage: 50 MCG/ACT SUSP 1 TO 2 SPRAYS DAILY
     Route: 045
     Dates: start: 20100211
  10. CYCLOBENZAPRINE [Concomitant]
     Dosage: 10 MG, UNK
  11. YASMIN [Suspect]
  12. PRISTIQ [Concomitant]
     Dosage: 50 MG, QD
     Route: 048
  13. MARCAINE [Concomitant]
     Indication: INFLAMMATION
  14. HYDROCODONE BITARTRATE AND ACETAMINOPHEN [Concomitant]
     Dosage: 5-500

REACTIONS (2)
  - PULMONARY EMBOLISM [None]
  - DEEP VEIN THROMBOSIS [None]
